FAERS Safety Report 7053802-X (Version None)
Quarter: 2010Q4

REPORT INFORMATION
  Report Type: 
  Country: None (occurrence: None)
  Receive Date: 20101020
  Receipt Date: 20101008
  Transmission Date: 20110411
  Serious: Yes (Hospitalization)
  Sender: FDA-Public Use
  Company Number: US-SANOFI-AVENTIS-2010SA061745

PATIENT
  Age: 62 Year
  Sex: Female
  Weight: 62.14 kg

DRUGS (1)
  1. PLAQUENIL [Suspect]
     Route: 048

REACTIONS (8)
  - BLISTER [None]
  - CHILLS [None]
  - EYE DISORDER [None]
  - FEELING COLD [None]
  - RESPIRATORY DISORDER [None]
  - SCAR [None]
  - SKIN BURNING SENSATION [None]
  - SKIN DISORDER [None]
